FAERS Safety Report 20115825 (Version 1)
Quarter: 2021Q4

REPORT INFORMATION
  Report Type: Spontaneous
  Country: IT (occurrence: IT)
  Receive Date: 20211126
  Receipt Date: 20211126
  Transmission Date: 20220303
  Serious: Yes (Hospitalization, Other)
  Sender: FDA-Public Use
  Company Number: IT-ABBVIE-21K-083-4176826-00

PATIENT
  Age: 22 Year
  Sex: Male

DRUGS (4)
  1. VALPROIC ACID [Suspect]
     Active Substance: VALPROIC ACID
     Indication: Drug abuse
     Dosage: TOTAL
     Route: 048
  2. METHADONE HYDROCHLORIDE [Concomitant]
     Active Substance: METHADONE HYDROCHLORIDE
     Indication: Drug dependence
  3. EN [Concomitant]
     Active Substance: DELORAZEPAM
     Indication: Anxiety
  4. TAVORA [Concomitant]
     Indication: Anxiety

REACTIONS (9)
  - Hyperammonaemia [Recovering/Resolving]
  - Alanine aminotransferase increased [Recovering/Resolving]
  - Intentional overdose [Unknown]
  - Intentional self-injury [Unknown]
  - Headache [Recovering/Resolving]
  - Nausea [Recovering/Resolving]
  - Vomiting [Recovering/Resolving]
  - Myalgia [Recovering/Resolving]
  - Abdominal pain [Recovering/Resolving]
